FAERS Safety Report 4389537-1 (Version None)
Quarter: 2004Q2

REPORT INFORMATION
  Report Type: 
  Country: None (occurrence: None)
  Receive Date: 20040628
  Receipt Date: 20040614
  Transmission Date: 20050107
  Serious: Yes (Hospitalization)
  Sender: FDA-Public Use
  Company Number: 04P-056-0264127-00

PATIENT
  Age: 60 Year
  Sex: Male

DRUGS (6)
  1. KALETRA [Suspect]
     Indication: HIV INFECTION
     Dosage: 3 DOSAGE FORMS, 2 IN 1 D, PER ORAL
     Route: 048
  2. CARBOPLATIN [Suspect]
     Indication: CHEMOTHERAPY
     Dosage: INTRAVENOUS
     Route: 042
     Dates: start: 20040115
  3. DOCETAXEL [Suspect]
     Indication: CHEMOTHERAPY
     Dosage: INTRAVENOUS
     Route: 042
     Dates: start: 20040213
  4. LAMIVUDINE [Suspect]
     Dosage: 150 MG, 2 IN 1 D, PER ORAL
     Route: 048
  5. TENOFOVIR [Suspect]
     Dosage: 245 MG, 1 IN 1 D, PER ORAL
     Route: 048
  6. PACLITAXEL [Concomitant]

REACTIONS (16)
  - BRONCHIAL CARCINOMA [None]
  - DYSPHASIA [None]
  - ERYTHEMA [None]
  - EYE DISORDER [None]
  - FACE OEDEMA [None]
  - MOUTH ULCERATION [None]
  - MUCOSAL ULCERATION [None]
  - NAIL DISORDER [None]
  - NEUROPATHY PERIPHERAL [None]
  - OEDEMA PERIPHERAL [None]
  - ORAL SOFT TISSUE DISORDER [None]
  - PRURITUS [None]
  - SQUAMOUS CELL CARCINOMA [None]
  - THROAT LESION [None]
  - TONGUE DISORDER [None]
  - TOXIC SKIN ERUPTION [None]
